FAERS Safety Report 6007082-4 (Version None)
Quarter: 2008Q4

REPORT INFORMATION
  Report Type: 
  Country: None (occurrence: None)
  Receive Date: 20081217
  Receipt Date: 20080108
  Transmission Date: 20090506
  Serious: No
  Sender: FDA-Public Use
  Company Number: US-ASTRAZENECA-2008UW00587

PATIENT
  Age: 38 Year
  Sex: Male
  Weight: 60.8 kg

DRUGS (4)
  1. CRESTOR [Suspect]
     Indication: BLOOD CHOLESTEROL INCREASED
     Route: 048
     Dates: start: 20070701
  2. AVANDAMET [Concomitant]
     Indication: TYPE 2 DIABETES MELLITUS
  3. MULTIVITS [Concomitant]
  4. FISH OIL [Concomitant]

REACTIONS (1)
  - MUSCLE SPASMS [None]
